FAERS Safety Report 9104038 (Version 1)
Quarter: 2013Q1

REPORT INFORMATION
  Report Type: Spontaneous
  Country: AU (occurrence: AU)
  Receive Date: 20130219
  Receipt Date: 20130219
  Transmission Date: 20140127
  Serious: Yes (Other)
  Sender: FDA-Public Use
  Company Number: PHHY2013AU015175

PATIENT
  Sex: Female

DRUGS (7)
  1. ACLASTA [Suspect]
     Dosage: UNK UKN, UNK
     Route: 042
  2. CALTRATE [Concomitant]
  3. CRESTOR [Concomitant]
  4. EZETROL [Concomitant]
  5. MICARDIS PLUS [Concomitant]
  6. FELODIPINE [Concomitant]
  7. METOPROLOL TARTRATE [Concomitant]

REACTIONS (1)
  - Renal tubular necrosis [Unknown]
